FAERS Safety Report 10155543 (Version 1)
Quarter: 2014Q2

REPORT INFORMATION
  Report Type: Spontaneous
  Country: FR (occurrence: FR)
  Receive Date: 20140506
  Receipt Date: 20140506
  Transmission Date: 20141212
  Serious: Yes (Other)
  Sender: FDA-Public Use
  Company Number: FR-BRISTOL-MYERS SQUIBB COMPANY-20685624

PATIENT
  Age: 31 Year
  Sex: Female

DRUGS (3)
  1. HYDREA CAPS 500 MG [Suspect]
     Indication: ESSENTIAL THROMBOCYTHAEMIA
     Dosage: 1DF = 1 CAPSULE(NOV13-UNK.DATE)?JAN14-DOSE INCREASED TO 9CAP/WEEK.
     Route: 048
     Dates: start: 201311
  2. KARDEGIC [Concomitant]
     Indication: THROMBOPHLEBITIS
     Dosage: 160MG 1 SACHET
  3. ASPEGIC [Concomitant]
     Indication: THROMBOPHLEBITIS

REACTIONS (2)
  - Arthralgia [Recovered/Resolved]
  - Paraesthesia [Unknown]
